FAERS Safety Report 6405881-8 (Version None)
Quarter: 2009Q4

REPORT INFORMATION
  Report Type: 
  Country: None (occurrence: None)
  Receive Date: 20091016
  Receipt Date: 20091016
  Transmission Date: 20100525
  Serious: Yes (Hospitalization)
  Sender: FDA-Public Use
  Company Number: None

PATIENT
  Sex: Female
  Weight: 13.6 kg

DRUGS (2)
  1. AMOXICILLIN [Suspect]
     Indication: OTITIS MEDIA
     Dosage: PO
     Route: 048
     Dates: start: 20090913, end: 20090920
  2. AMOXICILLIN [Suspect]
     Indication: PHARYNGITIS
     Dosage: PO
     Route: 048
     Dates: start: 20090913, end: 20090920

REACTIONS (9)
  - ARTHRALGIA [None]
  - ARTHRITIS BACTERIAL [None]
  - DRUG HYPERSENSITIVITY [None]
  - JOINT SWELLING [None]
  - PYREXIA [None]
  - RASH [None]
  - SERUM SICKNESS [None]
  - URTICARIA [None]
  - WEIGHT BEARING DIFFICULTY [None]
